FAERS Safety Report 9894308 (Version 1)
Quarter: 2014Q1

REPORT INFORMATION
  Report Type: Spontaneous
  Country: US (occurrence: US)
  Receive Date: 20140213
  Receipt Date: 20140213
  Transmission Date: 20141002
  Serious: No
  Sender: FDA-Public Use
  Company Number: US-PFIZER INC-2014037316

PATIENT
  Age: 79 Year
  Sex: Female
  Weight: 49.89 kg

DRUGS (2)
  1. VENLAFAXINE HCL [Suspect]
     Indication: ANXIETY
     Dosage: UNK, 1X/DAY
     Dates: start: 201311
  2. VENLAFAXINE HCL [Suspect]
     Dosage: UNK, AS NEEDED
     Dates: start: 201311

REACTIONS (3)
  - Intentional drug misuse [Unknown]
  - Aggression [Unknown]
  - Insomnia [Unknown]
